FAERS Safety Report 8986171 (Version 1)
Quarter: 2012Q4

REPORT INFORMATION
  Report Type: Spontaneous
  Country: US (occurrence: None)
  Receive Date: 20121219
  Receipt Date: 20121219
  Transmission Date: 20130627
  Serious: Yes (Other)
  Sender: FDA-Public Use
  Company Number: None

PATIENT
  Age: 65 Year
  Sex: Male
  Weight: 61 kg

DRUGS (15)
  1. QUETIAPINE (UNKNOWN) [Suspect]
     Indication: AGITATION
     Dosage: 25 mg daily po
     Route: 048
     Dates: start: 20120312, end: 20120315
  2. QUETIAPINE (UNKNOWN) [Suspect]
     Indication: DELIRIUM
     Dosage: 25 mg daily po
     Route: 048
     Dates: start: 20120312, end: 20120315
  3. QUETIAPINE (UNKNOWN) [Suspect]
     Indication: AGITATION
     Dosage: 12.5 mg bid prn po
     Route: 048
     Dates: start: 20120312, end: 20120315
  4. QUETIAPINE (UNKNOWN) [Suspect]
     Indication: DELIRIUM
     Dosage: 12.5 mg bid prn po
     Route: 048
     Dates: start: 20120312, end: 20120315
  5. FAMOTIDINE [Concomitant]
  6. ENOXAPARIN [Concomitant]
  7. ALBUTEROL/IPRATROPIUM [Concomitant]
  8. METOPROLOL [Concomitant]
  9. SIMVASTATIN [Concomitant]
  10. LORAZEPAM [Concomitant]
  11. THIAMINE [Concomitant]
  12. FOLIC ACID [Concomitant]
  13. LISINOPRIL [Concomitant]
  14. LIDOCAINE [Concomitant]
  15. NICOTINE PATCH [Concomitant]

REACTIONS (2)
  - Hyponatraemia [None]
  - Inappropriate antidiuretic hormone secretion [None]
